FAERS Safety Report 5517121-2 (Version None)
Quarter: 2007Q4

REPORT INFORMATION
  Report Type: 
  Country: None (occurrence: None)
  Receive Date: 20071114
  Receipt Date: 20071109
  Transmission Date: 20080405
  Serious: Yes (Hospitalization)
  Sender: FDA-Public Use
  Company Number: A0694546A

PATIENT
  Age: 2 Year
  Sex: Male
  Weight: 11 kg

DRUGS (4)
  1. ZINNAT [Suspect]
     Indication: PNEUMONIA
     Dosage: 5ML TWICE PER DAY
     Dates: start: 20071103
  2. AMOXICILLIN AND CLAVULANATE POTASSIUM [Suspect]
     Indication: PNEUMONIA
     Dates: start: 20071011, end: 20071103
  3. NOVALGINA [Concomitant]
     Dates: start: 20071012
  4. SALINE SOLUTION [Concomitant]

REACTIONS (2)
  - ANOREXIA [None]
  - DRUG INEFFECTIVE [None]
